FAERS Safety Report 4578042-5 (Version None)
Quarter: 2005Q1

REPORT INFORMATION
  Report Type: 
  Country: None (occurrence: None)
  Receive Date: 20050127
  Receipt Date: 20040901
  Transmission Date: 20050727
  Serious: No
  Sender: FDA-Public Use
  Company Number: USA040977098

PATIENT
  Age: 13 Year
  Sex: Male
  Weight: 55 kg

DRUGS (1)
  1. STRATTERA [Suspect]
     Indication: ATTENTION DEFICIT/HYPERACTIVITY DISORDER
     Dosage: 60 MG DAY
     Dates: start: 20040817

REACTIONS (7)
  - DECREASED APPETITE [None]
  - DISTURBANCE IN ATTENTION [None]
  - DRY MOUTH [None]
  - FEELING ABNORMAL [None]
  - HEART RATE INCREASED [None]
  - PYREXIA [None]
  - STOMACH DISCOMFORT [None]
